FAERS Safety Report 6327443-3 (Version None)
Quarter: 2009Q3

REPORT INFORMATION
  Report Type: 
  Country: None (occurrence: None)
  Receive Date: 20090818
  Receipt Date: 20090710
  Transmission Date: 20100115
  Serious: No
  Sender: FDA-Public Use
  Company Number: WAES 0907USA01533

PATIENT
  Sex: Female

DRUGS (1)
  1. JANUVIA [Suspect]
     Dates: start: 20090708

REACTIONS (1)
  - BLOOD GLUCOSE INCREASED [None]
